FAERS Safety Report 15700812 (Version 3)
Quarter: 2019Q1

REPORT INFORMATION
  Report Type: Report from Study
  Country: FR (occurrence: FR)
  Receive Date: 20181207
  Receipt Date: 20190319
  Transmission Date: 20190417
  Serious: Yes (Other)
  Sender: FDA-Public Use
  Company Number: FR-UCBSA-2016024995

PATIENT
  Age: 38 Year
  Sex: Female
  Weight: 73 kg

DRUGS (3)
  1. LEVOTHYROX [Concomitant]
     Active Substance: LEVOTHYROXINE
     Indication: HYPOTHYROIDISM
     Dosage: 125 ?G, ONCE DAILY (QD)
     Route: 048
     Dates: start: 2000
  2. STERILET T [Concomitant]
     Indication: CONTRACEPTIVE IMPLANT
     Dosage: 1 DF, UNK
     Route: 015
     Dates: start: 2011
  3. CERTOLIZUMAB PEGOL [Suspect]
     Active Substance: CERTOLIZUMAB PEGOL
     Indication: PSORIASIS
     Dosage: 200 MG, EV 2 WEEKS(QOW)
     Route: 058
     Dates: start: 20151005, end: 20160613

REACTIONS (2)
  - Gestational diabetes [Unknown]
  - Pregnancy [Unknown]

NARRATIVE: CASE EVENT DATE: 20160630
